FAERS Safety Report 6000312-4 (Version None)
Quarter: 2008Q4

REPORT INFORMATION
  Report Type: 
  Country: None (occurrence: None)
  Receive Date: 20081211
  Receipt Date: 20081211
  Transmission Date: 20090506
  Serious: Yes (Hospitalization)
  Sender: FDA-Public Use
  Company Number: None

PATIENT
  Sex: Female
  Weight: 66.7 kg

DRUGS (1)
  1. FEMARA [Suspect]
     Dosage: 2.5 MG

REACTIONS (9)
  - ABDOMINAL PAIN UPPER [None]
  - DRY SKIN [None]
  - DYSPNOEA [None]
  - NAUSEA [None]
  - OCCULT BLOOD POSITIVE [None]
  - RECTAL HAEMORRHAGE [None]
  - RENAL CYST [None]
  - SKIN WARM [None]
  - URINARY TRACT INFECTION [None]
